FAERS Safety Report 25966350 (Version 1)
Quarter: 2025Q4

REPORT INFORMATION
  Report Type: Spontaneous
  Country: CN (occurrence: CN)
  Receive Date: 20251028
  Receipt Date: 20251028
  Transmission Date: 20260117
  Serious: Yes (Other)
  Sender: AUROBINDO
  Company Number: CN-AUROBINDO-AUR-APL-2025-054041

PATIENT
  Age: 35 Year
  Sex: Male

DRUGS (12)
  1. MIRTAZAPINE [Suspect]
     Active Substance: MIRTAZAPINE
     Indication: Anxiety
     Dosage: 10 MILLIGRAM, ONCE A DAY
     Route: 048
     Dates: start: 20250918, end: 20251014
  2. MIRTAZAPINE [Suspect]
     Active Substance: MIRTAZAPINE
     Indication: Sleep disorder
  3. PAROXETINE [Concomitant]
     Active Substance: PAROXETINE
     Indication: Anxiety
     Dosage: 20 MILLIGRAM, DAILY
     Route: 048
     Dates: start: 20250918
  4. QUETIAPINE FUMARATE [Concomitant]
     Active Substance: QUETIAPINE FUMARATE
     Indication: Anxiety
     Dosage: UNK
     Route: 065
     Dates: start: 20250918
  5. QUETIAPINE FUMARATE [Concomitant]
     Active Substance: QUETIAPINE FUMARATE
     Indication: Sleep disorder
  6. METHYLCOBALAMIN [Concomitant]
     Active Substance: METHYLCOBALAMIN
     Indication: Product used for unknown indication
     Dosage: 0.5 MILLIGRAM, 3 TIMES A DAY
     Route: 048
     Dates: start: 20250918
  7. CITICOLINE [Concomitant]
     Active Substance: CITICOLINE
     Indication: Nutritional supplementation
     Dosage: 0.2 GRAM, 3 TIMES A DAY
     Route: 048
     Dates: start: 20250918
  8. BUSPIRONE HYDROCHLORIDE [Concomitant]
     Active Substance: BUSPIRONE HYDROCHLORIDE
     Indication: Gait disturbance
     Dosage: 5 MILLIGRAM, 3 TIMES A DAY
     Route: 048
     Dates: start: 20250918
  9. DIAZEPAM [Concomitant]
     Active Substance: DIAZEPAM
     Indication: Affective disorder
     Dosage: 10 MILLIGRAM
     Route: 042
     Dates: start: 20250918
  10. DIAZEPAM [Concomitant]
     Active Substance: DIAZEPAM
     Dosage: 5 MILLIGRAM
     Route: 042
     Dates: start: 20250923
  11. DEXTROSE [Concomitant]
     Active Substance: DEXTROSE MONOHYDRATE
     Indication: Affective disorder
     Dosage: (250 ML:12.5 G (5%)) 250 ML
     Route: 042
     Dates: start: 20250918
  12. DEXTROSE [Concomitant]
     Active Substance: DEXTROSE MONOHYDRATE
     Dosage: 250 ML:12.5 G (5%)) 250 ML IV DRIP QD
     Route: 042
     Dates: start: 20251008

REACTIONS (1)
  - Hepatic function abnormal [Recovering/Resolving]

NARRATIVE: CASE EVENT DATE: 20251003
